FAERS Safety Report 5160475-X (Version None)
Quarter: 2006Q4

REPORT INFORMATION
  Report Type: 
  Country: None (occurrence: None)
  Receive Date: 20061120
  Receipt Date: 20060306
  Transmission Date: 20070319
  Serious: Yes (Hospitalization)
  Sender: FDA-Public Use
  Company Number: 2006VX000272

PATIENT
  Age: 40 Year
  Sex: Male

DRUGS (4)
  1. INTERFERON ALFACON-1 [Suspect]
     Indication: HEPATITIS C
     Dosage: 9 UG; QD; SC
     Route: 058
     Dates: start: 20051001, end: 20060208
  2. REBETOL [Concomitant]
  3. ZOFRAN [Concomitant]
  4. METHADONE HCL [Concomitant]

REACTIONS (2)
  - AMMONIA INCREASED [None]
  - CONSTIPATION [None]
